FAERS Safety Report 5849928-6 (Version None)
Quarter: 2008Q3

REPORT INFORMATION
  Report Type: 
  Country: None (occurrence: None)
  Receive Date: 20080819
  Receipt Date: 20080812
  Transmission Date: 20090109
  Serious: Yes (Hospitalization)
  Sender: FDA-Public Use
  Company Number: JP-EISAI MEDICAL RESEARCH-E2090-00504-SPO-JP

PATIENT
  Sex: Male

DRUGS (29)
  1. EXCEGRAN [Suspect]
     Indication: CONVULSION PROPHYLAXIS
     Route: 048
     Dates: start: 20070602, end: 20070704
  2. AMLODIPINE BESYLATE [Concomitant]
     Indication: HYPERTENSION
     Route: 048
     Dates: start: 20070602, end: 20070703
  3. PAXIL [Concomitant]
     Indication: DEPRESSION
     Route: 048
     Dates: start: 20070622, end: 20070703
  4. CELESTAMINE TAB [Concomitant]
     Dosage: 9 DOSAGE
     Route: 048
     Dates: start: 20070702, end: 20070703
  5. ACETAMINOPHEN [Concomitant]
     Indication: PYREXIA
     Dosage: UNKNOWN
     Route: 048
     Dates: start: 20070704, end: 20070707
  6. FLOMOX [Concomitant]
     Indication: INFECTION
     Route: 048
     Dates: start: 20070704, end: 20070708
  7. PREDONINE [Concomitant]
     Indication: DRUG ERUPTION
     Dates: start: 20070705, end: 20070706
  8. PREDONINE [Concomitant]
     Route: 048
     Dates: start: 20070706, end: 20070701
  9. PREDONINE [Concomitant]
     Route: 041
     Dates: start: 20070710, end: 20070730
  10. PREDONINE [Concomitant]
     Route: 048
     Dates: start: 20070731, end: 20070701
  11. PREDONINE [Concomitant]
     Route: 048
     Dates: start: 20070101, end: 20070810
  12. PREDONINE [Concomitant]
     Route: 048
     Dates: start: 20070811, end: 20070814
  13. PREDONINE [Concomitant]
     Route: 048
     Dates: start: 20070815, end: 20070818
  14. PREDONINE [Concomitant]
     Route: 048
     Dates: start: 20070819, end: 20070821
  15. PREDONINE [Concomitant]
     Route: 048
     Dates: start: 20070822, end: 20070825
  16. PREDONINE [Concomitant]
     Route: 048
     Dates: start: 20070826, end: 20070828
  17. PREDONINE [Concomitant]
     Route: 048
     Dates: start: 20070829, end: 20070902
  18. RHYTHMY [Concomitant]
     Indication: INSOMNIA
     Route: 048
  19. GRAMALIL [Concomitant]
     Route: 048
     Dates: start: 20070710
  20. RISPERDAL [Concomitant]
     Dates: start: 20070710, end: 20070805
  21. RISPERDAL [Concomitant]
     Route: 048
     Dates: start: 20070806
  22. GASTER D [Concomitant]
     Route: 048
     Dates: start: 20070824
  23. ONEALFA (ALFACALCIDOL) [Concomitant]
  24. DIAZEPAM [Concomitant]
     Route: 041
     Dates: start: 20070726
  25. DEPAKENE [Concomitant]
     Indication: CONVULSION PROPHYLAXIS
     Route: 048
     Dates: start: 20070703, end: 20070707
  26. DEPAKENE [Concomitant]
     Route: 048
     Dates: start: 20070726
  27. LANSOPRAZOLE [Concomitant]
     Dosage: UNKNOWN
     Dates: start: 20070824
  28. MEROPEN [Concomitant]
     Route: 041
     Dates: start: 20070903
  29. MAXIPIME [Concomitant]
     Route: 041
     Dates: start: 20070907, end: 20070914

REACTIONS (3)
  - DRUG RASH WITH EOSINOPHILIA AND SYSTEMIC SYMPTOMS [None]
  - INTERSTITIAL LUNG DISEASE [None]
  - PLATELET COUNT DECREASED [None]
